FAERS Safety Report 17140943 (Version 1)
Quarter: 2019Q4

REPORT INFORMATION
  Report Type: Spontaneous
  Country: US (occurrence: US)
  Receive Date: 20191211
  Receipt Date: 20191211
  Transmission Date: 20200122
  Serious: Yes (Hospitalization, Congenital Anomaly, Other)
  Sender: FDA-Public Use
  Company Number: US-AMNEAL PHARMACEUTICALS-2019-AMRX-03100

PATIENT
  Sex: Male
  Weight: 1.92 kg

DRUGS (3)
  1. BUPRENORPHINE. [Suspect]
     Active Substance: BUPRENORPHINE
     Indication: PRODUCT USED FOR UNKNOWN INDICATION
     Dosage: UNK
     Route: 064
  2. HEROIN [Suspect]
     Active Substance: DIAMORPHINE
     Indication: PRODUCT USED FOR UNKNOWN INDICATION
     Dosage: UNK
     Route: 064
  3. GABAPENTIN. [Suspect]
     Active Substance: GABAPENTIN
     Indication: PRODUCT USED FOR UNKNOWN INDICATION
     Dosage: UNK
     Route: 064

REACTIONS (13)
  - Hypoxic-ischaemic encephalopathy [Unknown]
  - Congenital multiplex arthrogryposis [Unknown]
  - Anal skin tags [Unknown]
  - Neonatal respiratory distress [Unknown]
  - Low set ears [Unknown]
  - Foetal exposure during pregnancy [Unknown]
  - High arched palate [Unknown]
  - Micrognathia [Unknown]
  - Drug withdrawal syndrome neonatal [Unknown]
  - Blindness [Unknown]
  - Deafness bilateral [Unknown]
  - Low birth weight baby [Unknown]
  - Premature baby [Unknown]
